FAERS Safety Report 16327833 (Version 3)
Quarter: 2019Q2

REPORT INFORMATION
  Report Type: Spontaneous
  Country: IT (occurrence: IT)
  Receive Date: 20190518
  Receipt Date: 20190603
  Transmission Date: 20190711
  Serious: Yes (Hospitalization, Other)
  Sender: FDA-Public Use
  Company Number: PHHY2019IT111000

PATIENT
  Age: 40 Year
  Sex: Male

DRUGS (1)
  1. REVOLADE [Suspect]
     Active Substance: ELTROMBOPAG
     Indication: PRODUCT USED FOR UNKNOWN INDICATION
     Dosage: 50 MG, QD
     Route: 065
     Dates: start: 20190417

REACTIONS (4)
  - Thrombosis [Not Recovered/Not Resolved]
  - Haemolysis [Not Recovered/Not Resolved]
  - Haemolytic anaemia [Unknown]
  - Blood bilirubin unconjugated increased [Not Recovered/Not Resolved]

NARRATIVE: CASE EVENT DATE: 20190505
